FAERS Safety Report 8795027 (Version 1)
Quarter: 2012Q4

REPORT INFORMATION
  Report Type: 
  Country: US (occurrence: US)
  Receive Date: 20120917
  Receipt Date: 20120917
  Transmission Date: 20130627
  Serious: Yes (Other)
  Sender: FDA-Public Use
  Company Number: US-ROCHE-1127435

PATIENT
  Age: 40 Year
  Sex: Female

DRUGS (1)
  1. RITUXAN [Suspect]
     Indication: B-CELL LYMPHOMA
     Route: 065
     Dates: start: 20120907

REACTIONS (1)
  - Benign intracranial hypertension [Not Recovered/Not Resolved]
